FAERS Safety Report 26134598 (Version 2)
Quarter: 2025Q4

REPORT INFORMATION
  Report Type: Report from Study
  Country: CL (occurrence: CL)
  Receive Date: 20251209
  Receipt Date: 20251223
  Transmission Date: 20260118
  Serious: Yes (Hospitalization, Other)
  Sender: ROCHE
  Company Number: CL-ROCHE-10000451484

PATIENT
  Age: 63 Year
  Sex: Female

DRUGS (11)
  1. PHESGO [Suspect]
     Active Substance: HYALURONIDASE-ZZXF\PERTUZUMAB\TRASTUZUMAB
     Indication: HER2 positive breast cancer
     Dosage: LOADING DOSE IN CYCLE 1 1200/600 MG
     Route: 058
     Dates: start: 20251009, end: 20251104
  2. PHESGO [Suspect]
     Active Substance: HYALURONIDASE-ZZXF\PERTUZUMAB\TRASTUZUMAB
     Indication: Neoadjuvant therapy
     Dosage: IN CYCLE 2 600/600MG
     Route: 058
     Dates: end: 20251104
  3. CARBOPLATIN [Concomitant]
     Active Substance: CARBOPLATIN
     Indication: HER2 positive breast cancer
     Route: 042
     Dates: start: 20251009, end: 20251104
  4. CARBOPLATIN [Concomitant]
     Active Substance: CARBOPLATIN
     Indication: Neoadjuvant therapy
  5. DOCETAXEL [Concomitant]
     Active Substance: DOCETAXEL
     Indication: HER2 positive breast cancer
     Route: 042
     Dates: start: 20251009, end: 20251104
  6. DOCETAXEL [Concomitant]
     Active Substance: DOCETAXEL
     Indication: Neoadjuvant therapy
  7. Oral vancomycin [Concomitant]
     Indication: Product used for unknown indication
     Dosage: 2 CUBIC CENTIMETERS 4 TIMES A DAY FOR 2 DAYS
     Route: 048
  8. TRAMADOL [Concomitant]
     Active Substance: TRAMADOL
     Indication: Product used for unknown indication
     Dosage: TRAMADOL
  9. OMEPRAZOLE [Concomitant]
     Active Substance: OMEPRAZOLE
     Indication: Product used for unknown indication
     Dosage: DOSE AND FREQUENCY WERE NOT REPORTED
  10. DULOXETINE [Concomitant]
     Active Substance: DULOXETINE
     Indication: Product used for unknown indication
     Dosage: DOSE AND FREQUENCY WERE NOT REPORTED
  11. MIRTAZAPINE [Concomitant]
     Active Substance: MIRTAZAPINE
     Indication: Product used for unknown indication
     Dosage: DOSE: 1/4 IN THE EVENING.

REACTIONS (11)
  - Clostridium test positive [Recovered/Resolved]
  - Gastrointestinal inflammation [Recovered/Resolved]
  - Abdominal pain [Recovered/Resolved]
  - Vomiting [Recovered/Resolved]
  - Diarrhoea [Recovered/Resolved]
  - Performance status decreased [Recovered/Resolved]
  - Anaemia [Recovered/Resolved]
  - Food intolerance [Recovered/Resolved]
  - Back pain [Not Recovered/Not Resolved]
  - Thoracic vertebral fracture [Unknown]
  - Compression fracture [Unknown]

NARRATIVE: CASE EVENT DATE: 20251115
